FAERS Safety Report 12196636 (Version 2)
Quarter: 2016Q1

REPORT INFORMATION
  Report Type: Report from Study
  Country: SE (occurrence: SE)
  Receive Date: 20160321
  Receipt Date: 20160328
  Transmission Date: 20160526
  Serious: Yes (Death)
  Sender: FDA-Public Use
  Company Number: SE-ABBVIE-16P-150-1586518-00

PATIENT
  Age: 75 Year
  Sex: Male

DRUGS (1)
  1. DUODOPA [Suspect]
     Active Substance: CARBIDOPA\LEVODOPA
     Indication: PARKINSON^S DISEASE
     Dosage: 4.5ML/H DURING THE DAY, 3.8ML/H DURING THE NIGHT.
     Route: 065
     Dates: start: 20110911, end: 20160309

REACTIONS (3)
  - Pneumonia [Fatal]
  - Dyspnoea [Fatal]
  - Apnoea [Fatal]

NARRATIVE: CASE EVENT DATE: 20160309
